FAERS Safety Report 5501108-X (Version None)
Quarter: 2007Q4

REPORT INFORMATION
  Report Type: 
  Country: None (occurrence: None)
  Receive Date: 20071029
  Receipt Date: 20071017
  Transmission Date: 20080405
  Serious: Yes (Hospitalization, Other)
  Sender: FDA-Public Use
  Company Number: US-PFIZER INC-2007072831

PATIENT
  Sex: Female
  Weight: 72.6 kg

DRUGS (3)
  1. CHANTIX [Suspect]
     Indication: EX-SMOKER
     Dates: start: 20070501, end: 20070901
  2. ALPRAZOLAM [Concomitant]
     Indication: NERVOUSNESS
  3. ASPIRIN [Concomitant]

REACTIONS (5)
  - ATRIOVENTRICULAR BLOCK [None]
  - CAROTID ARTERY OCCLUSION [None]
  - NAUSEA [None]
  - NERVOUSNESS [None]
  - VOMITING [None]
